FAERS Safety Report 6676569-3 (Version None)
Quarter: 2010Q2

REPORT INFORMATION
  Report Type: 
  Country: None (occurrence: None)
  Receive Date: 20100412
  Receipt Date: 20100330
  Transmission Date: 20101027
  Serious: Yes (Hospitalization)
  Sender: FDA-Public Use
  Company Number: GB-ELI_LILLY_AND_COMPANY-GB201003008014

PATIENT
  Sex: Female
  Weight: 73.7 kg

DRUGS (6)
  1. PEMETREXED [Suspect]
     Indication: NON-SMALL CELL LUNG CANCER
     Dosage: 500 MG/M2, ONCE EVERY 21 DAYS
     Route: 042
     Dates: start: 20100322
  2. CISPLATIN [Suspect]
     Indication: NON-SMALL CELL LUNG CANCER
     Dosage: 75 MG/M2, ONCE EVERY 21 DAYS
     Route: 042
     Dates: start: 20100322
  3. FOLIC ACID [Concomitant]
     Indication: PROPHYLAXIS
     Dates: start: 20100315
  4. VITAMIN B-12 [Concomitant]
     Indication: PROPHYLAXIS
     Dates: start: 20100322
  5. DEXAMETHASONE [Concomitant]
     Indication: PROPHYLAXIS
     Dates: start: 20100321
  6. ZOPICLONE [Concomitant]
     Indication: INSOMNIA
     Dates: start: 20100201

REACTIONS (2)
  - ABDOMINAL DISTENSION [None]
  - NAUSEA [None]
